FAERS Safety Report 6316422-8 (Version None)
Quarter: 2009Q3

REPORT INFORMATION
  Report Type: 
  Country: None (occurrence: None)
  Receive Date: 20090820
  Receipt Date: 20090723
  Transmission Date: 20100115
  Serious: No
  Sender: FDA-Public Use
  Company Number: US-BAYER-200912764BCC

PATIENT
  Age: 46 Year
  Sex: Female
  Weight: 43 kg

DRUGS (3)
  1. ALEVE [Suspect]
     Indication: TOOTH ABSCESS
     Dosage: UNIT DOSE: 220 MG
     Route: 048
     Dates: start: 20090718, end: 20090720
  2. ALEVE [Suspect]
     Dosage: TOTAL DAILY DOSE: 880 MG  UNIT DOSE: 220 MG
     Route: 048
     Dates: start: 20090721, end: 20090721
  3. ALEVE [Suspect]
     Dosage: TOTAL DAILY DOSE: 1320 MG  UNIT DOSE: 220 MG
     Route: 048
     Dates: start: 20090722, end: 20090722

REACTIONS (1)
  - DRUG SCREEN POSITIVE [None]
